FAERS Safety Report 13269609 (Version 5)
Quarter: 2017Q1

REPORT INFORMATION
  Report Type: Report from Study
  Country: US (occurrence: US)
  Receive Date: 20170224
  Receipt Date: 20170328
  Transmission Date: 20170428
  Serious: Yes (Other)
  Sender: FDA-Public Use
  Company Number: US-JNJFOC-20170106148

PATIENT
  Age: 53 Year
  Sex: Female

DRUGS (4)
  1. METHOTREXATE. [Concomitant]
     Active Substance: METHOTREXATE
     Dosage: 6 TABLETS WEEKLY
     Route: 065
  2. PREDNISONE. [Concomitant]
     Active Substance: PREDNISONE
     Indication: RHEUMATOID ARTHRITIS
     Dosage: 2.5 MG ((STARTED ON 10 MG TAPER DOSE) ONCE DAILY
     Route: 065
     Dates: start: 20170112
  3. STELARA [Suspect]
     Active Substance: USTEKINUMAB
     Indication: RHEUMATOID ARTHRITIS
     Dosage: NEXT DOSE DUE IN 8 WEEKS
     Route: 042
     Dates: start: 20170103
  4. STELARA [Suspect]
     Active Substance: USTEKINUMAB
     Indication: CROHN^S DISEASE
     Dosage: NEXT DOSE DUE IN 8 WEEKS
     Route: 042
     Dates: start: 20170103

REACTIONS (10)
  - Rheumatoid arthritis [Not Recovered/Not Resolved]
  - Stress urinary incontinence [Not Recovered/Not Resolved]
  - Back pain [Unknown]
  - Mouth ulceration [Unknown]
  - Diarrhoea [Unknown]
  - Chest pain [Unknown]
  - Chills [Unknown]
  - Vomiting [Unknown]
  - Sinusitis [Recovering/Resolving]
  - Lower respiratory tract infection [Not Recovered/Not Resolved]

NARRATIVE: CASE EVENT DATE: 201701
